FAERS Safety Report 5647923-3 (Version None)
Quarter: 2008Q1

REPORT INFORMATION
  Report Type: 
  Country: None (occurrence: None)
  Receive Date: 20080303
  Receipt Date: 20080226
  Transmission Date: 20080703
  Serious: Yes (Other)
  Sender: FDA-Public Use
  Company Number: JP-PFIZER INC-2008018310

PATIENT
  Age: 45 Year
  Sex: Female

DRUGS (3)
  1. ZOLOFT [Suspect]
     Dosage: DAILY DOSE:75MG
     Route: 048
     Dates: start: 20071018, end: 20080201
  2. MEILAX [Concomitant]
     Route: 048
  3. GASMOTIN [Concomitant]
     Route: 048

REACTIONS (2)
  - GRANULOCYTOPENIA [None]
  - HEPATIC FUNCTION ABNORMAL [None]
